FAERS Safety Report 7553555-2 (Version None)
Quarter: 2011Q2

REPORT INFORMATION
  Report Type: 
  Country: None (occurrence: None)
  Receive Date: 20110617
  Receipt Date: 20110120
  Transmission Date: 20111010
  Serious: Yes (Other)
  Sender: FDA-Public Use
  Company Number: US-BAYER-201041975NA

PATIENT
  Age: 16 Year
  Sex: Female
  Weight: 73 kg

DRUGS (9)
  1. YAZ [Suspect]
     Indication: ACNE
     Dosage: UNK
     Route: 048
     Dates: start: 20080626, end: 20081101
  2. INDERAL [Concomitant]
  3. EFFEXOR XR [Concomitant]
     Dosage: 75 MG, QD
     Route: 048
  4. SUMATRIPTAN SUCCINATE [Concomitant]
     Indication: MIGRAINE
     Dosage: 6 MG, QD
     Route: 058
  5. TOPAMAX [Concomitant]
     Indication: MIGRAINE
  6. YAZ [Suspect]
     Indication: PREMENSTRUAL SYNDROME
  7. YAZ [Suspect]
     Indication: CONTRACEPTION
  8. VERPAMIL HCL [Concomitant]
  9. TOPAMAX [Concomitant]
     Indication: PAIN
     Dosage: UNK
     Dates: start: 20000101

REACTIONS (3)
  - ABDOMINAL PAIN LOWER [None]
  - CHOLECYSTITIS CHRONIC [None]
  - GALLBLADDER DISORDER [None]
